FAERS Safety Report 7536568-6 (Version None)
Quarter: 2011Q2

REPORT INFORMATION
  Report Type: 
  Country: None (occurrence: None)
  Receive Date: 20110609
  Receipt Date: 20110531
  Transmission Date: 20111010
  Serious: Yes (Other)
  Sender: FDA-Public Use
  Company Number: BR-ASTRAZENECA-2011SE34081

PATIENT
  Age: 1650 Day
  Sex: Female
  Weight: 17.5 kg

DRUGS (3)
  1. BUDESONIDE [Suspect]
     Indication: SINUSITIS
     Dosage: 2 SPRAYS BID
     Route: 045
     Dates: start: 20110530, end: 20110530
  2. BUDESONIDE [Suspect]
     Dosage: 2 SPRAYS BID
     Route: 045
     Dates: start: 20110531, end: 20110531
  3. LORATADINE [Concomitant]
     Indication: SINUSITIS
     Route: 048
     Dates: start: 20110530, end: 20110531

REACTIONS (6)
  - OFF LABEL USE [None]
  - PRURITUS [None]
  - OEDEMA MOUTH [None]
  - LARYNGEAL OEDEMA [None]
  - DRUG PRESCRIBING ERROR [None]
  - SKIN PLAQUE [None]
